FAERS Safety Report 9156977 (Version 1)
Quarter: 2013Q1

REPORT INFORMATION
  Report Type: Spontaneous
  Country: US (occurrence: None)
  Receive Date: 20130311
  Receipt Date: 20130311
  Transmission Date: 20140127
  Serious: Yes (Death)
  Sender: FDA-Public Use
  Company Number: None

PATIENT
  Age: 103 Year
  Sex: Male

DRUGS (1)
  1. WARFARIN [Suspect]
     Route: 048

REACTIONS (5)
  - Headache [None]
  - Somnolence [None]
  - Subdural haematoma [None]
  - Blood pressure increased [None]
  - Pneumonia [None]
